FAERS Safety Report 14901652 (Version 1)
Quarter: 2018Q2

REPORT INFORMATION
  Report Type: Spontaneous
  Country: FR (occurrence: FR)
  Receive Date: 20180516
  Receipt Date: 20180516
  Transmission Date: 20180711
  Serious: Yes (Other)
  Sender: FDA-Public Use
  Company Number: FR-MERCK KGAA-2047920

PATIENT
  Sex: Female

DRUGS (1)
  1. NOVOTHYROX [Suspect]
     Active Substance: LEVOTHYROXINE SODIUM
     Indication: PRODUCT USED FOR UNKNOWN INDICATION

REACTIONS (43)
  - Nightmare [Recovering/Resolving]
  - Anger [Recovering/Resolving]
  - Libido decreased [Recovering/Resolving]
  - Daydreaming [Recovering/Resolving]
  - Fear [Recovering/Resolving]
  - Crying [Recovering/Resolving]
  - Headache [Recovering/Resolving]
  - Poor quality sleep [Recovering/Resolving]
  - Angioedema [Recovering/Resolving]
  - Torticollis [Recovering/Resolving]
  - Vision blurred [Recovering/Resolving]
  - Muscle spasms [Recovering/Resolving]
  - Musculoskeletal stiffness [Recovering/Resolving]
  - Balance disorder [Recovering/Resolving]
  - Eye irritation [Recovering/Resolving]
  - Decreased interest [Recovering/Resolving]
  - Irritability [Recovering/Resolving]
  - Memory impairment [Recovering/Resolving]
  - Pain [Recovering/Resolving]
  - Abdominal pain upper [Recovering/Resolving]
  - Dry eye [Recovering/Resolving]
  - Somnolence [Recovering/Resolving]
  - Amnesia [Recovering/Resolving]
  - Social avoidant behaviour [Recovering/Resolving]
  - Impaired work ability [Recovering/Resolving]
  - Fatigue [Recovering/Resolving]
  - Emotional disorder [Recovering/Resolving]
  - Disturbance in attention [Recovering/Resolving]
  - Bradyphrenia [Recovering/Resolving]
  - Pain in extremity [Recovering/Resolving]
  - Vertigo [Recovering/Resolving]
  - Depression [Recovering/Resolving]
  - Impatience [Recovering/Resolving]
  - Impaired driving ability [Recovering/Resolving]
  - Dizziness [Recovering/Resolving]
  - Malaise [Recovering/Resolving]
  - Decreased activity [Recovering/Resolving]
  - Hypokinesia [Recovering/Resolving]
  - Alopecia [Recovering/Resolving]
  - Asthenia [Recovering/Resolving]
  - Diarrhoea [Recovering/Resolving]
  - Tremor [Recovering/Resolving]
  - Mood swings [Recovering/Resolving]
